FAERS Safety Report 15288720 (Version 1)
Quarter: 2018Q3

REPORT INFORMATION
  Report Type: Spontaneous
  Country: US (occurrence: US)
  Receive Date: 20180802
  Receipt Date: 20180802
  Transmission Date: 20181010
  Serious: No
  Sender: FDA-Public Use
  Company Number: None

PATIENT
  Age: 86 Year
  Sex: Female
  Weight: 57.15 kg

DRUGS (17)
  1. ATORVASTATIN [Concomitant]
     Active Substance: ATORVASTATIN
  2. XARELTO [Concomitant]
     Active Substance: RIVAROXABAN
  3. LEVOTHYROX [Concomitant]
     Active Substance: LEVOTHYROXINE
  4. FISH OIL [Concomitant]
     Active Substance: FISH OIL
  5. IRON [Concomitant]
     Active Substance: IRON
  6. METAMUCIL [Concomitant]
     Active Substance: PLANTAGO SEED
  7. PANTOPRAZOLE [Concomitant]
     Active Substance: PANTOPRAZOLE
  8. FUROSEMIDE. [Concomitant]
     Active Substance: FUROSEMIDE
  9. CALTRATE [Concomitant]
     Active Substance: CALCIUM CARBONATE
  10. LORATADINE. [Concomitant]
     Active Substance: LORATADINE
  11. FUROSEMIDE. [Concomitant]
     Active Substance: FUROSEMIDE
  12. PRESERVISION [Concomitant]
     Active Substance: MINERALS\VITAMINS
  13. D3 1000 IU [Concomitant]
  14. LETROZOLE. [Concomitant]
     Active Substance: LETROZOLE
  15. PRENATAL VITAMINS [Concomitant]
     Active Substance: VITAMINS
  16. PROLIA [Suspect]
     Active Substance: DENOSUMAB
     Dates: start: 20161028, end: 20171003
  17. PROPRANOLOL [Concomitant]
     Active Substance: PROPRANOLOL HYDROCHLORIDE

REACTIONS (2)
  - Skin disorder [None]
  - Rash pruritic [None]
